FAERS Safety Report 22212944 (Version 1)
Quarter: 2023Q2

REPORT INFORMATION
  Report Type: Spontaneous
  Country: US (occurrence: US)
  Receive Date: 20230414
  Receipt Date: 20230414
  Transmission Date: 20230722
  Serious: Yes (Hospitalization, Other)
  Sender: FDA-Public Use
  Company Number: US-MYLANLABS-2023M1038034

PATIENT
  Age: 52 Year
  Sex: Female

DRUGS (16)
  1. GEMCITABINE [Suspect]
     Active Substance: GEMCITABINE
     Indication: Sarcoma metastatic
     Dosage: 900 MILLIGRAM/SQ. METER, CYCLE,ON DAY 1 AND DAY 8 (ALONG WITH DOCETAXEL), EVERY 21 DAYS
     Route: 065
     Dates: start: 20200401
  2. GEMCITABINE [Suspect]
     Active Substance: GEMCITABINE
     Indication: Tuberous sclerosis complex
     Dosage: 800 MILLIGRAM/SQ. METER, CYCLE,ON DAY 1 AND DAY 8 (ALONG WITH SIROLIMUS), EVERY 21 DAYS
     Route: 065
     Dates: start: 20210929
  3. GEMCITABINE [Suspect]
     Active Substance: GEMCITABINE
     Indication: Gene mutation
     Dosage: 900 MILLIGRAM/SQ. METER, CYCLE,ON DAY 1 AND DAY 8 (ALONG WITH SIROLIMUS), EVERY 21 DAYS
     Route: 065
     Dates: start: 20220321, end: 20220404
  4. DOCETAXEL [Suspect]
     Active Substance: DOCETAXEL
     Indication: Sarcoma metastatic
     Dosage: 75 MILLIGRAM/SQ. METER, CYCLE, ON DAY 8 (ALONG WITH GEMCITABINE), EVERY 21 DAYS
     Route: 065
     Dates: start: 20200401
  5. DOCETAXEL [Suspect]
     Active Substance: DOCETAXEL
     Indication: Tuberous sclerosis complex
  6. DOCETAXEL [Suspect]
     Active Substance: DOCETAXEL
     Indication: Gene mutation
  7. DOXORUBICIN [Suspect]
     Active Substance: DOXORUBICIN
     Indication: Sarcoma metastatic
     Dosage: 75 MILLIGRAM/SQ. METER, CYCLE,EVERY 21 DAYS (ALONG WITH DACARBAZINE)
     Route: 065
  8. DOXORUBICIN [Suspect]
     Active Substance: DOXORUBICIN
     Indication: Tuberous sclerosis complex
  9. DOXORUBICIN [Suspect]
     Active Substance: DOXORUBICIN
     Indication: Gene mutation
  10. SIROLIMUS [Suspect]
     Active Substance: SIROLIMUS
     Indication: Sarcoma metastatic
     Dosage: 5 MILLIGRAM, CYCLE,DAILY IN EACH 3 WEEKS CYCLE
     Route: 065
     Dates: start: 20210929
  11. SIROLIMUS [Suspect]
     Active Substance: SIROLIMUS
     Indication: Tuberous sclerosis complex
     Dosage: 7 MILLIGRAM, CYCLE DAILY IN EACH 3 WEEKS CYCLE
     Route: 065
     Dates: start: 20220321
  12. SIROLIMUS [Suspect]
     Active Substance: SIROLIMUS
     Indication: Gene mutation
     Dosage: 5 MILLIGRAM, CYCLE,DAILY IN EACH 3 WEEKS CYCLE
     Route: 065
  13. DACARBAZINE [Suspect]
     Active Substance: DACARBAZINE
     Indication: Sarcoma metastatic
     Dosage: 750 MILLIGRAM/SQ. METER, CYCLE,EVERY 21 DAYS (ALONG WITH DOXORUBICIN)
     Route: 065
  14. DACARBAZINE [Suspect]
     Active Substance: DACARBAZINE
     Indication: Tuberous sclerosis complex
  15. DACARBAZINE [Suspect]
     Active Substance: DACARBAZINE
     Indication: Gene mutation
  16. MORPHINE [Concomitant]
     Active Substance: MORPHINE
     Indication: Product used for unknown indication
     Dosage: UNK
     Route: 065

REACTIONS (4)
  - Drug ineffective for unapproved indication [Unknown]
  - Off label use [Unknown]
  - Disease progression [Unknown]
  - Toxicity to various agents [Unknown]
